FAERS Safety Report 5613457-5 (Version None)
Quarter: 2008Q1

REPORT INFORMATION
  Report Type: 
  Country: None (occurrence: None)
  Receive Date: 20080129
  Receipt Date: 20080118
  Transmission Date: 20080703
  Serious: Yes (Disabling, Other)
  Sender: FDA-Public Use
  Company Number: 02100-EUR-08-0010

PATIENT
  Age: 80 Year
  Sex: Male

DRUGS (5)
  1. CILOSTAZOL [Suspect]
     Indication: INTERMITTENT CLAUDICATION
     Dosage: 100 MG, ORAL
     Route: 048
     Dates: start: 20070412, end: 20070705
  2. AMLODIPINE [Concomitant]
  3. CAPTOPRIL [Concomitant]
  4. BETA-ACETYLDIGOXIN [Concomitant]
  5. PHENPROCOUMON [Concomitant]

REACTIONS (1)
  - MACULAR DEGENERATION [None]
